FAERS Safety Report 13179613 (Version 1)
Quarter: 2017Q1

REPORT INFORMATION
  Report Type: Spontaneous
  Country: US (occurrence: US)
  Receive Date: 20170202
  Receipt Date: 20170202
  Transmission Date: 20170428
  Serious: No
  Sender: FDA-Public Use
  Company Number: US-PFIZER INC-2017042624

PATIENT
  Age: 79 Year
  Sex: Male
  Weight: 100 kg

DRUGS (2)
  1. SUTENT [Suspect]
     Active Substance: SUNITINIB MALATE
     Indication: RENAL CANCER
     Dosage: 37.5 MG, 1X/DAY
  2. OPDIVO [Concomitant]
     Active Substance: NIVOLUMAB
     Indication: RENAL CANCER
     Dosage: ONCE, EVERY TWO WEEK

REACTIONS (1)
  - Neoplasm progression [Unknown]
